FAERS Safety Report 8443192-X (Version None)
Quarter: 2012Q2

REPORT INFORMATION
  Report Type: 
  Country: None (occurrence: None)
  Receive Date: 20120617
  Receipt Date: 20120606
  Transmission Date: 20120825
  Serious: Yes (Hospitalization)
  Sender: FDA-Public Use
  Company Number: DE-AMGEN-DEUCT2012036635

PATIENT
  Age: 61 Year
  Sex: Female

DRUGS (3)
  1. METHOTREXATE SODIUM [Concomitant]
     Dosage: 22.5 MG, WEEKLY
     Dates: start: 20090301
  2. ETANERCEPT [Suspect]
     Indication: RHEUMATOID ARTHRITIS
     Dosage: 50 MG, UNK
     Dates: start: 20101101, end: 20110511
  3. PREDNISOLONE [Concomitant]
     Dosage: 5 MG, UNK
     Dates: start: 20080501

REACTIONS (2)
  - KNEE ARTHROPLASTY [None]
  - IMPAIRED HEALING [None]
